FAERS Safety Report 16462097 (Version 1)
Quarter: 2019Q2

REPORT INFORMATION
  Report Type: Spontaneous
  Country: CN (occurrence: CN)
  Receive Date: 20190621
  Receipt Date: 20190621
  Transmission Date: 20190711
  Serious: Yes (Life-Threatening, Hospitalization)
  Sender: FDA-Public Use
  Company Number: CN-ROCHE-2338823

PATIENT
  Age: 60 Year
  Sex: Male
  Weight: 64 kg

DRUGS (7)
  1. SODIUM CHLORIDE. [Concomitant]
     Active Substance: SODIUM CHLORIDE
     Dosage: SOLVENT FOR RITUXIMAB
     Route: 041
     Dates: start: 20190529, end: 20190529
  2. CISPLATIN. [Suspect]
     Active Substance: CISPLATIN
     Indication: LYMPHOMA
     Route: 041
     Dates: start: 20190530, end: 20190601
  3. MABTHERA [Suspect]
     Active Substance: RITUXIMAB
     Indication: LYMPHOMA
     Route: 041
     Dates: start: 20190529, end: 20190529
  4. SODIUM CHLORIDE. [Concomitant]
     Active Substance: SODIUM CHLORIDE
     Dosage: SOLVENT FOR CYTARABINE HYDROCHLORIDE FOR INJECTION
     Route: 041
     Dates: start: 20190531, end: 20190531
  5. GLUCOSE [Concomitant]
     Active Substance: DEXTROSE
     Dosage: SOLVENT FOR CISPLATIN INJECTION
     Route: 041
     Dates: start: 20190530, end: 20190601
  6. RECOMBINANT HUMAN GRANULOCYTE COLONY STIMULATING FACTOR [Concomitant]
     Indication: PROPHYLAXIS
     Route: 065
     Dates: start: 2019, end: 2019
  7. CYTARABINE HYDROCHLORIDE [Suspect]
     Active Substance: CYTARABINE HYDROCHLORIDE
     Indication: LYMPHOMA
     Route: 041
     Dates: start: 20190531, end: 20190531

REACTIONS (6)
  - Gingival bleeding [Recovered/Resolved]
  - Platelet count decreased [Not Recovered/Not Resolved]
  - Granulocyte count decreased [Not Recovered/Not Resolved]
  - Purpura [Not Recovered/Not Resolved]
  - White blood cell count decreased [Not Recovered/Not Resolved]
  - Fatigue [Not Recovered/Not Resolved]

NARRATIVE: CASE EVENT DATE: 20190612
